FAERS Safety Report 16997132 (Version 1)
Quarter: 2019Q4

REPORT INFORMATION
  Report Type: Spontaneous
  Country: US (occurrence: US)
  Receive Date: 20190924
  Receipt Date: 20190924
  Transmission Date: 20200122
  Serious: Yes (Hospitalization)
  Sender: FDA-Public Use
  Company Number: None

PATIENT
  Age: 54 Year
  Sex: Male

DRUGS (1)
  1. VOTRIENT [Suspect]
     Active Substance: PAZOPANIB HYDROCHLORIDE
     Indication: RENAL CANCER
     Route: 048
     Dates: start: 20190305

REACTIONS (5)
  - Knee operation [None]
  - Diarrhoea [None]
  - Hair colour changes [None]
  - Therapy cessation [None]
  - Nausea [None]

NARRATIVE: CASE EVENT DATE: 20190822
